FAERS Safety Report 19921113 (Version 1)
Quarter: 2021Q4

REPORT INFORMATION
  Report Type: Spontaneous
  Country: CN (occurrence: CN)
  Receive Date: 20211005
  Receipt Date: 20211005
  Transmission Date: 20220303
  Serious: Yes (Other)
  Sender: FDA-Public Use
  Company Number: CN-BAXTER-2021BAX026962

PATIENT
  Age: 64 Year
  Sex: Female
  Weight: 60 kg

DRUGS (12)
  1. CYCLOPHOSPHAMIDE [Suspect]
     Active Substance: CYCLOPHOSPHAMIDE
     Indication: Breast cancer female
     Dosage: CYCLOPHOSPHAMIDE FOR INJECTION 1G + 0.9% NS 100 ML
     Route: 041
     Dates: start: 20201026, end: 20201026
  2. CYCLOPHOSPHAMIDE [Suspect]
     Active Substance: CYCLOPHOSPHAMIDE
     Dosage: DOSE RE-INTRODUCED;  CYCLOPHOSPHAMIDE + 0.9% NS
     Route: 041
  3. SODIUM CHLORIDE [Suspect]
     Active Substance: SODIUM CHLORIDE
     Indication: Medication dilution
     Dosage: CYCLOPHOSPHAMIDE FOR INJECTION 1G + 0.9% NS 100 ML
     Route: 041
     Dates: start: 20201026, end: 20201026
  4. SODIUM CHLORIDE [Suspect]
     Active Substance: SODIUM CHLORIDE
     Dosage: DOSE RE-INTRODUCED;  CYCLOPHOSPHAMIDE + 0.9% NS
     Route: 041
  5. SODIUM CHLORIDE [Suspect]
     Active Substance: SODIUM CHLORIDE
     Dosage: PIRARUBICIN HYDROCHLORIDE FOR INJECTION 80 MG + 0.9% NS 250 ML
     Route: 041
     Dates: start: 20201026, end: 20201026
  6. SODIUM CHLORIDE [Suspect]
     Active Substance: SODIUM CHLORIDE
     Dosage: DOSE RE-INTRODUCED; PIRARUBICIN HYDROCHLORIDE + 0.9% NS
     Route: 041
  7. SODIUM CHLORIDE [Suspect]
     Active Substance: SODIUM CHLORIDE
     Dosage: DOCETAXEL INJECTION 100 MG + 0.9% NS 100 ML
     Route: 041
     Dates: start: 20201026, end: 20201026
  8. SODIUM CHLORIDE [Suspect]
     Active Substance: SODIUM CHLORIDE
     Dosage: DOSE RE-INTRODUCED;  DOCETAXEL + 0.9% NS
     Route: 041
  9. PIRARUBICIN HYDROCHLORIDE [Suspect]
     Active Substance: PIRARUBICIN HYDROCHLORIDE
     Indication: Breast cancer female
     Dosage: PIRARUBICIN HYDROCHLORIDE FOR INJECTION 80 MG + 0.9% NS 250 ML
     Route: 041
     Dates: start: 20201026, end: 20201026
  10. PIRARUBICIN HYDROCHLORIDE [Suspect]
     Active Substance: PIRARUBICIN HYDROCHLORIDE
     Dosage: DOSE RE-INTRODUCED; PIRARUBICIN HYDROCHLORIDE + 0.9% NS
     Route: 041
  11. DOCETAXEL [Suspect]
     Active Substance: DOCETAXEL
     Indication: Breast cancer female
     Dosage: DOCETAXEL INJECTION 100 MG + 0.9% NS 100 ML
     Route: 041
     Dates: start: 20201026, end: 20201026
  12. DOCETAXEL [Suspect]
     Active Substance: DOCETAXEL
     Dosage: DOSE RE-INTRODUCED; DOCETAXEL INJECTION  + 0.9% NS
     Route: 041

REACTIONS (2)
  - Neutrophil count decreased [Recovering/Resolving]
  - White blood cell count decreased [Recovering/Resolving]

NARRATIVE: CASE EVENT DATE: 20201109
